FAERS Safety Report 4563078-0 (Version None)
Quarter: 2005Q1

REPORT INFORMATION
  Report Type: 
  Country: None (occurrence: None)
  Receive Date: 20050125
  Receipt Date: 20050114
  Transmission Date: 20050727
  Serious: Yes (Disabling)
  Sender: FDA-Public Use
  Company Number: 2005-123851-NL

PATIENT
  Age: 16 Year
  Sex: Female

DRUGS (4)
  1. VECURONIUM BROMIDE [Suspect]
     Indication: MUSCLE RELAXANT THERAPY
     Dosage: 8 MG ONCE; INTRAVENOUS (NOS)
     Route: 042
     Dates: start: 20041224, end: 20041224
  2. PROPOFOL [Suspect]
     Indication: ANAESTHESIA
     Dosage: 120 MG ONCE; INTRAVENOUS (NOS)
     Route: 042
     Dates: start: 20041224, end: 20041224
  3. CEFAZOLIN SODIUM [Concomitant]
  4. HYDROCORTISONE SODIUM SUCCINATE [Concomitant]

REACTIONS (10)
  - ACUTE RESPIRATORY DISTRESS SYNDROME [None]
  - BLOOD PRESSURE DECREASED [None]
  - BODY TEMPERATURE INCREASED [None]
  - BRAIN OEDEMA [None]
  - HEART RATE DECREASED [None]
  - HYPERPYREXIA [None]
  - LARYNGEAL OEDEMA [None]
  - LYMPHOCYTE COUNT DECREASED [None]
  - VENTRICULAR FIBRILLATION [None]
  - WHITE BLOOD CELL COUNT INCREASED [None]
